FAERS Safety Report 11037423 (Version 1)
Quarter: 2015Q2

REPORT INFORMATION
  Report Type: Spontaneous
  Country: BR (occurrence: BR)
  Receive Date: 20150416
  Receipt Date: 20150416
  Transmission Date: 20150821
  Serious: Yes (Hospitalization)
  Sender: FDA-Public Use
  Company Number: BR-JNJFOC-20150409818

PATIENT
  Age: 57 Year
  Sex: Female

DRUGS (1)
  1. REMICADE [Suspect]
     Active Substance: INFLIXIMAB
     Indication: COLITIS
     Dosage: 2 YEARS PRIOR TO THIS REPORT
     Route: 042
     Dates: end: 20150206

REACTIONS (6)
  - Blister [Unknown]
  - Hypersensitivity [Unknown]
  - Erythema [Unknown]
  - Dyspnoea [Unknown]
  - Choking sensation [Unknown]
  - Malaise [Unknown]

NARRATIVE: CASE EVENT DATE: 201502
